FAERS Safety Report 5629505-2 (Version None)
Quarter: 2008Q1

REPORT INFORMATION
  Report Type: 
  Country: None (occurrence: None)
  Receive Date: 20080214
  Receipt Date: 20080214
  Transmission Date: 20080703
  Serious: Yes (Other)
  Sender: FDA-Public Use
  Company Number: None

PATIENT
  Age: 66 Year
  Sex: Female

DRUGS (1)
  1. PRAVACHOL [Suspect]
     Dates: start: 19990330, end: 20040401

REACTIONS (7)
  - BALANCE DISORDER [None]
  - DYSARTHRIA [None]
  - DYSPHAGIA [None]
  - EMOTIONAL DISTRESS [None]
  - FALL [None]
  - INJURY [None]
  - MUSCULAR WEAKNESS [None]
